FAERS Safety Report 7750757-7 (Version None)
Quarter: 2011Q3

REPORT INFORMATION
  Report Type: 
  Country: None (occurrence: None)
  Receive Date: 20110914
  Receipt Date: 20110913
  Transmission Date: 20111222
  Serious: Yes (Death, Hospitalization)
  Sender: FDA-Public Use
  Company Number: DE-BRISTOL-MYERS SQUIBB COMPANY-15646854

PATIENT
  Age: 79 Year
  Sex: Male
  Weight: 77 kg

DRUGS (6)
  1. NECITUMUMAB [Suspect]
     Indication: NON-SMALL CELL LUNG CANCER STAGE IV
     Dosage: EVERY 21DAYS/CYCLE LAST DOSE ON 23FEB11
     Route: 042
     Dates: start: 20101230
  2. FOLIC ACID [Concomitant]
     Dates: start: 20101221, end: 20110524
  3. PEMETREXED DISODIUM [Suspect]
     Indication: NON-SMALL CELL LUNG CANCER STAGE IV
     Dosage: EVERY 21DAYS/CYCLE LAST DOSE:27JAN11
     Route: 042
     Dates: start: 20101230
  4. DEXAMETHASONE [Concomitant]
     Dates: start: 20101229, end: 20110512
  5. VITAMIN B-12 [Concomitant]
     Dates: start: 20101221, end: 20110216
  6. CISPLATIN [Suspect]
     Indication: NON-SMALL CELL LUNG CANCER STAGE IV
     Dosage: EVERY 21DAYS/CYCLE LAST DOSE:27JAN11
     Route: 042
     Dates: start: 20101230

REACTIONS (5)
  - NEOPLASM MALIGNANT [None]
  - DUODENAL ULCER [None]
  - THROMBOCYTOPENIA [None]
  - CARDIAC FAILURE [None]
  - RESPIRATORY TRACT INFECTION [None]
